FAERS Safety Report 6038626-4 (Version None)
Quarter: 2009Q1

REPORT INFORMATION
  Report Type: 
  Country: None (occurrence: None)
  Receive Date: 20090115
  Receipt Date: 20090108
  Transmission Date: 20090719
  Serious: Yes (Death)
  Sender: FDA-Public Use
  Company Number: US-ABBOTT-09P-163-0497511-00

PATIENT
  Age: 38 Year
  Sex: Female

DRUGS (4)
  1. HYDROCODONE BITARTRATE + ACETAMINOPHEN [Suspect]
     Indication: DRUG USE FOR UNKNOWN INDICATION
     Dosage: ROUTE: INGESTION
  2. PROMETHAZINE [Suspect]
     Indication: DRUG USE FOR UNKNOWN INDICATION
     Dosage: ROUTE: INGESTION
  3. BENZODIAZEPINE [Suspect]
     Indication: DRUG USE FOR UNKNOWN INDICATION
     Dosage: ROUTE: INGESTION
  4. BENZODIAZEPINE [Suspect]

REACTIONS (1)
  - CARDIO-RESPIRATORY ARREST [None]
